FAERS Safety Report 23727877 (Version 1)
Quarter: 2024Q2

REPORT INFORMATION
  Report Type: Spontaneous
  Country: US (occurrence: None)
  Receive Date: 20240409
  Receipt Date: 20240409
  Transmission Date: 20240715
  Serious: No
  Sender: FDA-Public Use
  Company Number: None

PATIENT
  Age: 31 Year
  Sex: Female
  Weight: 54 kg

DRUGS (2)
  1. VEGAN COLLAGEN EVERY DAY SPF 30 [Suspect]
     Active Substance: AVOBENZONE\HOMOSALATE\OCTISALATE\OCTOCRYLENE
     Indication: Dry skin
     Dosage: OTHER QUANTITY : 1.7 OUNCE(S);?
     Route: 061
     Dates: start: 20240409, end: 20240409
  2. MAGNESIUM [Concomitant]
     Active Substance: MAGNESIUM

REACTIONS (4)
  - Skin burning sensation [None]
  - Eye irritation [None]
  - Eye swelling [None]
  - Application site reaction [None]

NARRATIVE: CASE EVENT DATE: 20240409
